FAERS Safety Report 5146331-1 (Version None)
Quarter: 2006Q4

REPORT INFORMATION
  Report Type: 
  Country: None (occurrence: None)
  Receive Date: 20061102
  Receipt Date: 20061023
  Transmission Date: 20070319
  Serious: Yes (Other)
  Sender: FDA-Public Use
  Company Number: 2006129668

PATIENT
  Sex: Female
  Weight: 172.3669 kg

DRUGS (2)
  1. ZOLOFT [Suspect]
     Indication: DEPRESSION
     Dates: start: 19910101
  2. REZULIN [Suspect]
     Indication: DIABETES MELLITUS

REACTIONS (3)
  - DIABETES MELLITUS [None]
  - HYPERTENSION [None]
  - SLEEP APNOEA SYNDROME [None]
